FAERS Safety Report 7827396-2 (Version None)
Quarter: 2011Q4

REPORT INFORMATION
  Report Type: 
  Country: None (occurrence: None)
  Receive Date: 20111020
  Receipt Date: 20110929
  Transmission Date: 20120403
  Serious: Yes (Other)
  Sender: FDA-Public Use
  Company Number: US-JNJCP-30000073330

PATIENT
  Sex: Female
  Weight: 91 kg

DRUGS (1)
  1. NTG OIL-FREE ACNE WASH USA NTOFAWUS [Suspect]
     Dosage: ONCE
     Route: 061
     Dates: start: 20110918

REACTIONS (2)
  - THROAT TIGHTNESS [None]
  - APPLICATION SITE RASH [None]
